FAERS Safety Report 10437092 (Version 1)
Quarter: 2014Q3

REPORT INFORMATION
  Report Type: Spontaneous
  Country: US (occurrence: US)
  Receive Date: 20140908
  Receipt Date: 20140908
  Transmission Date: 20150326
  Serious: No
  Sender: FDA-Public Use
  Company Number: US-PFIZER INC-2014245572

PATIENT
  Age: 67 Year
  Sex: Male
  Weight: 122.45 kg

DRUGS (1)
  1. LIPITOR [Suspect]
     Active Substance: ATORVASTATIN CALCIUM
     Indication: BLOOD CHOLESTEROL INCREASED
     Dosage: 220 MG, 1X/DAY
     Route: 048
     Dates: end: 2012

REACTIONS (2)
  - Drug ineffective [Unknown]
  - Muscle enzyme increased [Unknown]
